FAERS Safety Report 8997301 (Version 1)
Quarter: 2013Q1

REPORT INFORMATION
  Report Type: Spontaneous
  Country: US (occurrence: US)
  Receive Date: 20130104
  Receipt Date: 20130104
  Transmission Date: 20140127
  Serious: No
  Sender: FDA-Public Use
  Company Number: US-009507513-1301USA001238

PATIENT
  Age: 46 Year
  Sex: Female

DRUGS (2)
  1. NASONEX [Suspect]
     Indication: SINUS CONGESTION
     Dosage: 2 SPRAYS IN EACH NOSTRILL PER DAY
     Route: 045
     Dates: start: 20121231
  2. ALLEGRA [Concomitant]

REACTIONS (2)
  - Abdominal distension [Not Recovered/Not Resolved]
  - Dyspnoea [Not Recovered/Not Resolved]
